FAERS Safety Report 19647466 (Version 1)
Quarter: 2021Q3

REPORT INFORMATION
  Report Type: Spontaneous
  Country: PE (occurrence: PE)
  Receive Date: 20210802
  Receipt Date: 20210802
  Transmission Date: 20211014
  Serious: Yes (Other)
  Sender: FDA-Public Use
  Company Number: PE-SUN PHARMACEUTICAL INDUSTRIES LTD-2021RR-306410

PATIENT
  Age: 72 Year
  Sex: Male
  Weight: 48 kg

DRUGS (3)
  1. GLIBENCLAMIDE [Suspect]
     Active Substance: GLYBURIDE
     Indication: DIABETES MELLITUS
     Dosage: 5 MILLIGRAM, BID
     Route: 065
  2. INSULIN [Suspect]
     Active Substance: INSULIN NOS
     Indication: DIABETES MELLITUS
     Dosage: } 1 U/KG/DAY
     Route: 058
  3. METFORMIN [Suspect]
     Active Substance: METFORMIN HYDROCHLORIDE
     Indication: DIABETES MELLITUS
     Dosage: 850 MILLIGRAM, TID
     Route: 065

REACTIONS (2)
  - Insulin resistance [Unknown]
  - Drug ineffective [Unknown]
